FAERS Safety Report 13220115 (Version 2)
Quarter: 2017Q1

REPORT INFORMATION
  Report Type: Report from Study
  Country: FR (occurrence: FR)
  Receive Date: 20170210
  Receipt Date: 20170223
  Transmission Date: 20170428
  Serious: Yes (Hospitalization)
  Sender: FDA-Public Use
  Company Number: FR-BRISTOL-MYERS SQUIBB COMPANY-BMS-2016-103797

PATIENT
  Age: 55 Year
  Sex: Male
  Weight: 88 kg

DRUGS (1)
  1. NIVOLUMAB [Suspect]
     Active Substance: NIVOLUMAB
     Indication: METASTATIC RENAL CELL CARCINOMA
     Dosage: 260 MG, UNK
     Route: 042
     Dates: start: 20160927, end: 20161108

REACTIONS (1)
  - General physical health deterioration [Recovered/Resolved]

NARRATIVE: CASE EVENT DATE: 20161129
